FAERS Safety Report 18297283 (Version 2)
Quarter: 2020Q3

REPORT INFORMATION
  Report Type: Report from Study
  Country: CA (occurrence: CA)
  Receive Date: 20200922
  Receipt Date: 20200924
  Transmission Date: 20201103
  Serious: Yes (Other)
  Sender: FDA-Public Use
  Company Number: CA-JNJFOC-20200608644

PATIENT
  Age: 39 Year
  Sex: Female

DRUGS (2)
  1. STELARA [Suspect]
     Active Substance: USTEKINUMAB
     Indication: CROHN^S DISEASE
     Route: 058
  2. STELARA [Suspect]
     Active Substance: USTEKINUMAB

REACTIONS (14)
  - Throat irritation [Unknown]
  - Post procedural complication [Unknown]
  - Vaginal discharge [Unknown]
  - Back pain [Unknown]
  - Crohn^s disease [Unknown]
  - Anxiety [Unknown]
  - Gastrooesophageal reflux disease [Unknown]
  - Mood swings [Unknown]
  - Injection site bruising [Unknown]
  - Pain in extremity [Unknown]
  - Drug ineffective [Unknown]
  - Sensitive skin [Unknown]
  - Cystitis [Unknown]
  - Feeling abnormal [Unknown]

NARRATIVE: CASE EVENT DATE: 202007
